FAERS Safety Report 24028049 (Version 1)
Quarter: 2024Q2

REPORT INFORMATION
  Report Type: Spontaneous
  Country: US (occurrence: US)
  Receive Date: 20240628
  Receipt Date: 20240628
  Transmission Date: 20240717
  Serious: No
  Sender: FDA-Public Use
  Company Number: US-BRISTOL-MYERS SQUIBB COMPANY-2024-103577

PATIENT
  Age: 71 Year
  Sex: Male
  Weight: 75.3 kg

DRUGS (1)
  1. REVLIMID [Suspect]
     Active Substance: LENALIDOMIDE
     Indication: Plasma cell myeloma
     Dosage: ONCE EVERY OTHER DAY
     Route: 048

REACTIONS (3)
  - Lethargy [Unknown]
  - Nausea [Unknown]
  - Vomiting [Unknown]
